FAERS Safety Report 13966930 (Version 2)
Quarter: 2017Q4

REPORT INFORMATION
  Report Type: Spontaneous
  Country: US (occurrence: US)
  Receive Date: 20170914
  Receipt Date: 20171010
  Transmission Date: 20180320
  Serious: No
  Sender: FDA-Public Use
  Company Number: US-HORIZON-KRY-0095-2017

PATIENT
  Age: 80 Year
  Sex: Male
  Weight: 90.3 kg

DRUGS (2)
  1. REPATHA [Concomitant]
     Active Substance: EVOLOCUMAB
     Indication: BLOOD CHOLESTEROL INCREASED
  2. KRYSTEXXA [Suspect]
     Active Substance: PEGLOTICASE
     Indication: GOUT
     Dosage: 8 MG/ML EVERY TWO WEEKS
     Route: 042
     Dates: end: 20170823

REACTIONS (3)
  - Chest discomfort [Unknown]
  - Gout [Unknown]
  - Asthenia [Unknown]
